FAERS Safety Report 10618802 (Version 3)
Quarter: 2015Q1

REPORT INFORMATION
  Report Type: Report from Study
  Country: CA (occurrence: CA)
  Receive Date: 20141202
  Receipt Date: 20150201
  Transmission Date: 20150720
  Serious: Yes (Other)
  Sender: FDA-Public Use
  Company Number: CA-ROCHE-1499566

PATIENT
  Age: 47 Year
  Sex: Female

DRUGS (2)
  1. ACTEMRA [Suspect]
     Active Substance: TOCILIZUMAB
     Route: 042
     Dates: start: 2010
  2. ACTEMRA [Suspect]
     Active Substance: TOCILIZUMAB
     Indication: RHEUMATOID ARTHRITIS
     Route: 042
     Dates: start: 20110303, end: 201408

REACTIONS (4)
  - Pyelonephritis [Not Recovered/Not Resolved]
  - Demyelination [Unknown]
  - Central nervous system infection [Not Recovered/Not Resolved]
  - White matter lesion [Unknown]

NARRATIVE: CASE EVENT DATE: 201312
